FAERS Safety Report 7092788-9 (Version None)
Quarter: 2010Q4

REPORT INFORMATION
  Report Type: 
  Country: None (occurrence: None)
  Receive Date: 20101110
  Receipt Date: 20101102
  Transmission Date: 20110411
  Serious: Yes (Other)
  Sender: FDA-Public Use
  Company Number: US-PFIZER INC-2010091161

PATIENT
  Sex: Female
  Weight: 61.22 kg

DRUGS (3)
  1. GABAPENTIN [Suspect]
     Indication: ANXIETY
     Dosage: 400 MG, DAILY
     Route: 048
     Dates: start: 20100719, end: 20100101
  2. GABAPENTIN [Suspect]
     Indication: SLEEP DISORDER
  3. LOVASTATIN [Concomitant]
     Indication: BLOOD CHOLESTEROL INCREASED
     Dosage: 10 MG, UNK

REACTIONS (6)
  - ANXIETY [None]
  - DRUG INEFFECTIVE [None]
  - GASTROOESOPHAGEAL REFLUX DISEASE [None]
  - HEADACHE [None]
  - INSOMNIA [None]
  - PALPITATIONS [None]
